FAERS Safety Report 9139601 (Version 3)
Quarter: 2013Q3

REPORT INFORMATION
  Report Type: Report from Study
  Country: CA (occurrence: CA)
  Receive Date: 20130305
  Receipt Date: 20130726
  Transmission Date: 20140515
  Serious: Yes (Hospitalization)
  Sender: FDA-Public Use
  Company Number: CA-JNJFOC-20130216970

PATIENT
  Age: 64 Year
  Sex: Female
  Weight: 62 kg

DRUGS (3)
  1. REMICADE [Suspect]
     Indication: RHEUMATOID ARTHRITIS
     Dosage: INFUSION PRESCRIBED FOR 52 WEEKS
     Route: 042
     Dates: start: 20130227
  2. REMICADE [Suspect]
     Indication: RHEUMATOID ARTHRITIS
     Dosage: INFUSION PRESCRIBED FOR 52 WEEKS
     Route: 042
     Dates: start: 2005
  3. METHOTREXATE [Concomitant]
     Route: 048

REACTIONS (1)
  - Thyroid cancer [Unknown]
